FAERS Safety Report 9013718 (Version 1)
Quarter: 2013Q1

REPORT INFORMATION
  Report Type: Spontaneous
  Country: FR (occurrence: FR)
  Receive Date: 20130115
  Receipt Date: 20130115
  Transmission Date: 20140127
  Serious: Yes (Disabling, Other)
  Sender: FDA-Public Use
  Company Number: PHHY2012FR112522

PATIENT
  Age: 60 Year
  Sex: Female
  Weight: 58 kg

DRUGS (7)
  1. TASIGNA [Suspect]
     Indication: CHRONIC MYELOID LEUKAEMIA
     Dosage: 800 MG, UNK
     Route: 048
     Dates: start: 20101011
  2. TASIGNA [Suspect]
     Indication: CHRONIC MYELOID LEUKAEMIA
  3. SINTROM [Concomitant]
  4. XANAX [Concomitant]
  5. ANAFRANIL [Concomitant]
  6. CALDINE [Concomitant]
  7. KARDEGIC [Concomitant]

REACTIONS (4)
  - Peripheral arterial occlusive disease [Recovered/Resolved with Sequelae]
  - Pain in extremity [Recovered/Resolved with Sequelae]
  - Gait disturbance [Recovered/Resolved with Sequelae]
  - Intermittent claudication [Recovered/Resolved with Sequelae]
